FAERS Safety Report 10034922 (Version 1)
Quarter: 2014Q1

REPORT INFORMATION
  Report Type: Spontaneous
  Country: IN (occurrence: IN)
  Receive Date: 20140325
  Receipt Date: 20140325
  Transmission Date: 20141002
  Serious: Yes (Other)
  Sender: FDA-Public Use
  Company Number: IN-009507513-1403IND010810

PATIENT
  Age: 31 Year
  Sex: Female

DRUGS (1)
  1. JANUMET [Suspect]
     Indication: DIABETES MELLITUS
     Dosage: 1 TABLET / DAY
     Route: 048
     Dates: start: 20140120, end: 2014

REACTIONS (3)
  - Alopecia [Unknown]
  - Gastric disorder [Unknown]
  - Inappropriate schedule of drug administration [Unknown]
